FAERS Safety Report 5856103-8 (Version None)
Quarter: 2008Q3

REPORT INFORMATION
  Report Type: 
  Country: None (occurrence: None)
  Receive Date: 20080818
  Receipt Date: 20070925
  Transmission Date: 20090109
  Serious: No
  Sender: FDA-Public Use
  Company Number: 07H-163-0313184-00

PATIENT
  Age: 40 Year
  Sex: Male
  Weight: 119 kg

DRUGS (1)
  1. VANCOMYCIN HCL [Suspect]
     Dosage: 1 GM, EVERY 12 HOURS, INTRAVENOUS
     Route: 042
     Dates: start: 20070829, end: 20070910

REACTIONS (1)
  - RASH [None]
